FAERS Safety Report 10386251 (Version 6)
Quarter: 2015Q1

REPORT INFORMATION
  Report Type: Report from Study
  Country: AR (occurrence: AR)
  Receive Date: 20140815
  Receipt Date: 20150122
  Transmission Date: 20150720
  Serious: Yes (Hospitalization)
  Sender: FDA-Public Use
  Company Number: PHHY2014AR101234

PATIENT
  Age: 42 Year
  Sex: Male

DRUGS (4)
  1. CLOZARIL [Suspect]
     Active Substance: CLOZAPINE
     Indication: PRODUCT USED FOR UNKNOWN INDICATION
     Dosage: UNK
     Route: 048
  2. THIORIDAZINE [Concomitant]
     Active Substance: THIORIDAZINE
     Indication: PRODUCT USED FOR UNKNOWN INDICATION
     Dosage: UNK
     Route: 065
  3. ZUCLOPENTHIXOL [Concomitant]
     Active Substance: ZUCLOPENTHIXOL
     Indication: PRODUCT USED FOR UNKNOWN INDICATION
     Dosage: UNK
     Route: 065
  4. LORAZEPAM. [Concomitant]
     Active Substance: LORAZEPAM
     Indication: PRODUCT USED FOR UNKNOWN INDICATION
     Dosage: UNK
     Route: 065

REACTIONS (3)
  - White blood cell count decreased [Unknown]
  - Neutropenia [Unknown]
  - Influenza like illness [Unknown]

NARRATIVE: CASE EVENT DATE: 20140807
